FAERS Safety Report 6136083-0 (Version None)
Quarter: 2009Q1

REPORT INFORMATION
  Report Type: 
  Country: None (occurrence: None)
  Receive Date: 20090330
  Receipt Date: 20090318
  Transmission Date: 20090719
  Serious: Yes (Hospitalization)
  Sender: FDA-Public Use
  Company Number: CA-JNJFOC-20090304896

PATIENT
  Sex: Male
  Weight: 125 kg

DRUGS (1)
  1. REMICADE [Suspect]
     Indication: PSORIASIS
     Route: 042

REACTIONS (3)
  - BLOOD PRESSURE DIASTOLIC INCREASED [None]
  - HEART RATE IRREGULAR [None]
  - INFUSION RELATED REACTION [None]
